FAERS Safety Report 13927667 (Version 1)
Quarter: 2017Q3

REPORT INFORMATION
  Report Type: Spontaneous
  Country: US (occurrence: US)
  Receive Date: 20170901
  Receipt Date: 20170901
  Transmission Date: 20171127
  Serious: No
  Sender: FDA-Public Use
  Company Number: US-PFIZER INC-2017374272

PATIENT
  Age: 72 Year
  Sex: Female

DRUGS (9)
  1. VERSED [Suspect]
     Active Substance: MIDAZOLAM HYDROCHLORIDE
     Dosage: UNK
  2. HCTZ [Concomitant]
     Active Substance: HYDROCHLOROTHIAZIDE
     Dosage: UNK
  3. INH [Concomitant]
     Active Substance: ISONIAZID
     Dosage: UNK
  4. SULFASALAZINE. [Concomitant]
     Active Substance: SULFASALAZINE
     Dosage: UNK
  5. LISINOPRIL. [Suspect]
     Active Substance: LISINOPRIL
     Dosage: UNK
  6. DEMEROL [Suspect]
     Active Substance: MEPERIDINE HYDROCHLORIDE
     Dosage: UNK
  7. ARAVA [Concomitant]
     Active Substance: LEFLUNOMIDE
     Dosage: UNK
  8. SYNTHROID [Concomitant]
     Active Substance: LEVOTHYROXINE SODIUM
     Dosage: UNK
  9. LOSARTAN. [Concomitant]
     Active Substance: LOSARTAN
     Dosage: UNK

REACTIONS (1)
  - Drug hypersensitivity [Unknown]
